FAERS Safety Report 12496196 (Version 2)
Quarter: 2016Q3

REPORT INFORMATION
  Report Type: Report from Study
  Country: US (occurrence: US)
  Receive Date: 20160624
  Receipt Date: 20160712
  Transmission Date: 20161109
  Serious: Yes (Hospitalization)
  Sender: FDA-Public Use
  Company Number: US-BAYER-2015-022949

PATIENT
  Age: 54 Year
  Sex: Female
  Weight: 115.65 kg

DRUGS (14)
  1. LETAIRIS [Concomitant]
     Active Substance: AMBRISENTAN
  2. TRACLEER [Concomitant]
     Active Substance: BOSENTAN
  3. ADEMPAS [Suspect]
     Active Substance: RIOCIGUAT
     Indication: PULMONARY ARTERIAL HYPERTENSION
     Dosage: 1.5 MG, TID
     Route: 048
  4. ADEMPAS [Suspect]
     Active Substance: RIOCIGUAT
     Indication: PULMONARY ARTERIAL HYPERTENSION
     Dosage: UNK
  5. ADEMPAS [Suspect]
     Active Substance: RIOCIGUAT
     Indication: PULMONARY ARTERIAL HYPERTENSION
     Dosage: UNK
     Dates: start: 20150515
  6. ADEMPAS [Suspect]
     Active Substance: RIOCIGUAT
     Indication: PULMONARY ARTERIAL HYPERTENSION
     Dosage: 1.5 MG, TID (LAST SHIPPED 20-JAN-2016)
     Route: 048
  7. ADEMPAS [Suspect]
     Active Substance: RIOCIGUAT
     Indication: PULMONARY ARTERIAL HYPERTENSION
     Dosage: 1.5 MG, TID
     Route: 048
  8. ADEMPAS [Suspect]
     Active Substance: RIOCIGUAT
     Indication: PULMONARY ARTERIAL HYPERTENSION
     Dosage: 1.5 MG, TID
     Route: 048
  9. ADEMPAS [Suspect]
     Active Substance: RIOCIGUAT
     Indication: PULMONARY ARTERIAL HYPERTENSION
     Dosage: 0.5 MG, TID
     Route: 048
     Dates: start: 20150106
  10. ADEMPAS [Suspect]
     Active Substance: RIOCIGUAT
     Indication: PULMONARY ARTERIAL HYPERTENSION
     Dosage: 2 MG, TID
  11. ADEMPAS [Suspect]
     Active Substance: RIOCIGUAT
     Indication: PULMONARY ARTERIAL HYPERTENSION
     Dosage: 2 MG, TID
     Route: 048
  12. ADEMPAS [Suspect]
     Active Substance: RIOCIGUAT
     Indication: PULMONARY ARTERIAL HYPERTENSION
     Dosage: 1.5 MG, TID
     Route: 048
  13. TREPROSTINIL [Suspect]
     Active Substance: TREPROSTINIL
     Dosage: 0.75 MG, UNK
  14. TYVASO [Concomitant]
     Active Substance: TREPROSTINIL

REACTIONS (14)
  - Paraesthesia [Unknown]
  - Cardiac fibrillation [None]
  - Product use issue [None]
  - Arthralgia [None]
  - Dizziness [None]
  - Asthenia [None]
  - Hypotension [Unknown]
  - Cough [None]
  - Dizziness [Unknown]
  - Oedema peripheral [Unknown]
  - Adverse drug reaction [None]
  - Swelling [None]
  - Hospitalisation [None]
  - Diuretic therapy [None]

NARRATIVE: CASE EVENT DATE: 20150211
